FAERS Safety Report 10733327 (Version 6)
Quarter: 2017Q1

REPORT INFORMATION
  Report Type: Report from Study
  Country: CA (occurrence: CA)
  Receive Date: 20150123
  Receipt Date: 20170222
  Transmission Date: 20170428
  Serious: Yes (Death, Hospitalization)
  Sender: FDA-Public Use
  Company Number: PHHY2013CA016469

PATIENT
  Age: 86 Year
  Sex: Female

DRUGS (5)
  1. SANDOSTATIN [Suspect]
     Active Substance: OCTREOTIDE ACETATE
     Indication: IRON DEFICIENCY
  2. SANDOSTATIN LAR DEPOT [Suspect]
     Active Substance: OCTREOTIDE ACETATE
     Indication: ANAEMIA
     Dosage: 10 MG, QMO (ONCE A MONTH)
     Route: 030
     Dates: start: 20121020, end: 201503
  3. METOPROLOL. [Suspect]
     Active Substance: METOPROLOL
     Indication: HYPERTENSION
     Dosage: 50 UNK, UNK
     Route: 048
  4. SANDOSTATIN [Suspect]
     Active Substance: OCTREOTIDE ACETATE
     Indication: ANAEMIA
     Dosage: 100 UG, Q12H
     Route: 058
  5. SANDOSTATIN LAR DEPOT [Suspect]
     Active Substance: OCTREOTIDE ACETATE
     Indication: IRON DEFICIENCY
     Dosage: 20 MG, QMO (EVERY 4 WEEKS)
     Route: 030
     Dates: start: 20150416, end: 20161101

REACTIONS (14)
  - Loss of consciousness [Unknown]
  - Fall [Unknown]
  - Hypoacusis [Unknown]
  - Confusional state [Unknown]
  - Blood pressure systolic increased [Unknown]
  - Flatulence [Unknown]
  - Joint dislocation [Unknown]
  - Heart rate decreased [Unknown]
  - Product use issue [Unknown]
  - Death [Fatal]
  - Movement disorder [Unknown]
  - Upper limb fracture [Unknown]
  - Pain [Unknown]
  - Mental impairment [Unknown]

NARRATIVE: CASE EVENT DATE: 201501
